FAERS Safety Report 13509477 (Version 3)
Quarter: 2018Q2

REPORT INFORMATION
  Report Type: Spontaneous
  Country: US (occurrence: US)
  Receive Date: 20170503
  Receipt Date: 20180627
  Transmission Date: 20180711
  Serious: Yes (Other)
  Sender: FDA-Public Use
  Company Number: US-LUPIN PHARMACEUTICALS INC.-2017-02127

PATIENT
  Age: 66 Year
  Sex: Male

DRUGS (2)
  1. NALTREXONE [Interacting]
     Active Substance: NALTREXONE
     Indication: MULTIPLE SCLEROSIS
     Dosage: 2 MG, QD
     Route: 065
  2. OXYCODONE [Suspect]
     Active Substance: OXYCODONE
     Indication: WOUND COMPLICATION
     Dosage: 5 MG (TOTAL)
     Route: 065

REACTIONS (2)
  - Drug interaction [Recovered/Resolved]
  - Unresponsive to stimuli [Recovered/Resolved]
